FAERS Safety Report 6417981-7 (Version None)
Quarter: 2009Q4

REPORT INFORMATION
  Report Type: 
  Country: None (occurrence: None)
  Receive Date: 20091028
  Receipt Date: 20091020
  Transmission Date: 20100525
  Serious: Yes (Other)
  Sender: FDA-Public Use
  Company Number: JP-MERCK-0910USA02991

PATIENT
  Age: 80 Year
  Sex: Male

DRUGS (1)
  1. HYDRODIURIL [Suspect]
     Route: 048
     Dates: start: 20090828, end: 20091018

REACTIONS (2)
  - BLOOD POTASSIUM DECREASED [None]
  - RHABDOMYOLYSIS [None]
